FAERS Safety Report 8118057-3 (Version None)
Quarter: 2012Q1

REPORT INFORMATION
  Report Type: 
  Country: None (occurrence: None)
  Receive Date: 20120207
  Receipt Date: 20120202
  Transmission Date: 20120608
  Serious: No
  Sender: FDA-Public Use
  Company Number: US-PFIZER INC-2012030243

PATIENT
  Sex: Female
  Weight: 48.073 kg

DRUGS (1)
  1. DEPO-PROVERA [Suspect]
     Indication: CONTRACEPTION
     Dosage: UNK
     Dates: start: 20111217

REACTIONS (6)
  - MEMORY IMPAIRMENT [None]
  - CRYING [None]
  - MOOD SWINGS [None]
  - DYSGEUSIA [None]
  - DISTURBANCE IN ATTENTION [None]
  - HYPOAESTHESIA [None]
